FAERS Safety Report 11845978 (Version 1)
Quarter: 2015Q4

REPORT INFORMATION
  Report Type: Spontaneous
  Country: FR (occurrence: FR)
  Receive Date: 20151217
  Receipt Date: 20151217
  Transmission Date: 20160305
  Serious: Yes (Hospitalization)
  Sender: FDA-Public Use
  Company Number: FR-AMGEN-FRASP2015133000

PATIENT
  Age: 71 Year
  Sex: Female
  Weight: 47 kg

DRUGS (14)
  1. STILNOX [Concomitant]
     Active Substance: ZOLPIDEM TARTRATE
  2. VITAMIN K [Concomitant]
     Active Substance: PHYTONADIONE
  3. AMOXICILLIN. [Concomitant]
     Active Substance: AMOXICILLIN
  4. ARANESP [Suspect]
     Active Substance: DARBEPOETIN ALFA
     Indication: ERYTHROPOIESIS ABNORMAL
     Dosage: 71.4286 MUG (500 MUG 1 IN 7 DAYS), QWK
     Route: 058
     Dates: start: 201309
  5. NEORECORMON [Concomitant]
     Active Substance: ERYTHROPOIETIN
     Dosage: UNK
     Dates: start: 2015, end: 201507
  6. TAVANIC [Concomitant]
     Active Substance: LEVOFLOXACIN
  7. OROCAL VITAMIN D [Concomitant]
     Active Substance: CALCIUM CARBONATE\VITAMIN D
  8. DOLIPRANE [Concomitant]
     Active Substance: ACETAMINOPHEN
     Indication: PAIN
  9. BACTRIM [Concomitant]
     Active Substance: SULFAMETHOXAZOLE\TRIMETHOPRIM
  10. PREVISCAN                          /00261401/ [Concomitant]
     Active Substance: PENTOXIFYLLINE
  11. GANFORT [Concomitant]
     Active Substance: BIMATOPROST\TIMOLOL
  12. FOLIC ACID. [Concomitant]
     Active Substance: FOLIC ACID
     Dosage: 5 MG, 3 TIMES/WK
  13. INEXIUM                            /01479302/ [Concomitant]
     Active Substance: ESOMEPRAZOLE MAGNESIUM
     Dosage: 40 UNK, UNK
  14. OFLOCET                            /00731801/ [Concomitant]
     Active Substance: OFLOXACIN

REACTIONS (2)
  - Pyrexia [Recovered/Resolved]
  - Asthenia [Recovered/Resolved]

NARRATIVE: CASE EVENT DATE: 20151012
